FAERS Safety Report 5227883-X (Version None)
Quarter: 2007Q1

REPORT INFORMATION
  Report Type: 
  Country: None (occurrence: None)
  Receive Date: 20070202
  Receipt Date: 20070126
  Transmission Date: 20070707
  Serious: Yes (Disabling, Other)
  Sender: FDA-Public Use
  Company Number: DE-PFIZER INC-2006152880

PATIENT
  Sex: Female
  Weight: 60 kg

DRUGS (2)
  1. LYRICA [Suspect]
     Indication: PAIN
     Route: 048
     Dates: start: 20060601, end: 20061209
  2. INSULIN [Concomitant]

REACTIONS (6)
  - AMBLYOPIA [None]
  - CATARACT OPERATION [None]
  - DRUG WITHDRAWAL SYNDROME [None]
  - INTRAOCULAR PRESSURE INCREASED [None]
  - MYALGIA [None]
  - VERTIGO [None]
